FAERS Safety Report 8413876-8 (Version None)
Quarter: 2012Q2

REPORT INFORMATION
  Report Type: 
  Country: None (occurrence: None)
  Receive Date: 20120605
  Receipt Date: 20120522
  Transmission Date: 20120825
  Serious: No
  Sender: FDA-Public Use
  Company Number: US-ASTRAZENECA-2012SE32918

PATIENT
  Sex: Male

DRUGS (2)
  1. BLOOD PRESSURE MEDICINES [Concomitant]
  2. SYMBICORT [Suspect]
     Dosage: 80/4.5MCG, UNKNOWN
     Route: 055

REACTIONS (1)
  - GYNAECOMASTIA [None]
